FAERS Safety Report 7672459-8 (Version None)
Quarter: 2011Q3

REPORT INFORMATION
  Report Type: 
  Country: None (occurrence: None)
  Receive Date: 20110809
  Receipt Date: 20110728
  Transmission Date: 20111222
  Serious: Yes (Hospitalization, Other)
  Sender: FDA-Public Use
  Company Number: JP-UCBSA-037588

PATIENT
  Sex: Female

DRUGS (11)
  1. CERTOLIZUMAB PEGOL [Suspect]
     Indication: RHEUMATOID ARTHRITIS
     Dosage: FROM 16-DEC-2009 TO 16-JUN-2010.
     Route: 058
     Dates: start: 20100630, end: 20110701
  2. ETODOLAC [Concomitant]
     Dates: start: 20091216
  3. ATORVASTATIN CALCIUM [Concomitant]
     Dates: start: 20080523
  4. LANSOPRAZOLE [Concomitant]
     Dates: start: 20070904
  5. SODIUM HYALURONATE [Concomitant]
     Dosage: ADEQUATE DOSE
     Dates: start: 20100519
  6. METHOTREXATE [Concomitant]
     Dates: start: 20110426
  7. SODIUM RISEDRONATE HYDRATE [Concomitant]
     Dates: start: 20081008
  8. FOLIC ACID [Concomitant]
     Dates: start: 20091008
  9. METHOTREXATE [Concomitant]
     Dates: start: 20091013, end: 20110420
  10. LAFUTIDINE [Concomitant]
     Dates: start: 20070904
  11. KETOPROFEN [Concomitant]
     Dates: start: 20110112

REACTIONS (1)
  - PNEUMONIA [None]
